FAERS Safety Report 4469820-1 (Version None)
Quarter: 2004Q4

REPORT INFORMATION
  Report Type: 
  Country: None (occurrence: None)
  Receive Date: 20041008
  Receipt Date: 20040929
  Transmission Date: 20050328
  Serious: Yes (Other)
  Sender: FDA-Public Use
  Company Number: JP-GLAXOSMITHKLINE-B0347274A

PATIENT
  Age: 72 Year
  Sex: Male
  Weight: 57 kg

DRUGS (6)
  1. PAXIL [Suspect]
     Indication: DEPRESSION
     Route: 048
     Dates: start: 20031101, end: 20031201
  2. ZANTAC [Suspect]
     Route: 048
     Dates: start: 20031101, end: 20031201
  3. MYSLEE [Concomitant]
     Indication: INSOMNIA
     Dosage: 5MG PER DAY
     Route: 048
     Dates: start: 20031101
  4. DEPAS [Concomitant]
     Indication: DEPRESSION
     Dosage: .5MG THREE TIMES PER DAY
     Route: 048
     Dates: start: 20040101
  5. DEPAS [Concomitant]
     Dosage: .5MG TWICE PER DAY
     Route: 048
  6. NEODOPASTON [Concomitant]
     Indication: PARKINSON'S DISEASE
     Dosage: 1 PER DAY
     Route: 048
     Dates: start: 20040301

REACTIONS (5)
  - ANOREXIA [None]
  - DIFFICULTY IN WALKING [None]
  - DIZZINESS [None]
  - HYPOTENSION [None]
  - PARKINSON'S DISEASE [None]
